FAERS Safety Report 9312515 (Version 2)
Quarter: 2013Q2

REPORT INFORMATION
  Report Type: Spontaneous
  Country: MX (occurrence: None)
  Receive Date: 20130520
  Receipt Date: 20130520
  Transmission Date: 20140414
  Serious: No
  Sender: FDA-Public Use
  Company Number: 1305MEX000593

PATIENT
  Age: 2 Year
  Sex: Female

DRUGS (2)
  1. CEDAX [Suspect]
     Indication: PNEUMONIA
     Route: 048
     Dates: start: 20130423, end: 20130423
  2. CEFTRIAXONE SODIUM (CEFTRIAXONE SODIUM) [Concomitant]

REACTIONS (3)
  - Hypersensitivity [None]
  - Dermatitis [None]
  - Urticaria [None]
